FAERS Safety Report 8435633-9 (Version None)
Quarter: 2012Q2

REPORT INFORMATION
  Report Type: 
  Country: None (occurrence: None)
  Receive Date: 20120614
  Receipt Date: 20120611
  Transmission Date: 20120825
  Serious: Yes (Hospitalization)
  Sender: FDA-Public Use
  Company Number: GB-PFIZER INC-2012077846

PATIENT
  Age: 90 Year
  Sex: Female
  Weight: 71.8 kg

DRUGS (17)
  1. LYRICA [Suspect]
     Indication: NEURALGIA
     Dosage: 75 MG, FREQUENCY UNKNOWN
     Route: 048
     Dates: end: 20120324
  2. WARFARIN [Concomitant]
     Indication: ATRIAL FIBRILLATION
  3. SENNA [Concomitant]
     Indication: CONSTIPATION
     Dosage: 7.5 MG, 2X/DAY
     Route: 048
  4. PRAVASTATIN [Concomitant]
     Indication: TYPE 2 DIABETES MELLITUS
     Dosage: 20 MG, 1X/DAY
     Route: 048
  5. CACIT D3 [Concomitant]
     Indication: OSTEOARTHRITIS
     Dosage: UNK, 1 TIME DAILY
     Route: 048
  6. ISMO [Concomitant]
     Indication: ANGINA PECTORIS
     Dosage: 60 MG, HALF DAILY
     Route: 048
  7. NOVOLOG MIX 70/30 [Concomitant]
     Indication: TYPE 2 DIABETES MELLITUS
     Dosage: UNK
     Route: 058
  8. SALBUTAMOL [Concomitant]
     Indication: CHRONIC OBSTRUCTIVE PULMONARY DISEASE
     Dosage: UNK
  9. METFORMIN [Concomitant]
     Indication: TYPE 2 DIABETES MELLITUS
     Dosage: 500 MG, 1X/DAY
     Route: 048
  10. BECLOMETHASONE DIPROPIONATE [Concomitant]
     Indication: CHRONIC OBSTRUCTIVE PULMONARY DISEASE
     Dosage: UNK
  11. FUROSEMIDE [Concomitant]
     Indication: CARDIAC FAILURE CHRONIC
  12. AMITRIPTYLINE [Concomitant]
     Indication: NEURALGIA
     Dosage: 10 MG, UNK
     Route: 048
  13. FUROSEMIDE [Concomitant]
     Indication: OEDEMA
     Dosage: 40 MG, 2X/DAY
     Route: 048
  14. WARFARIN [Concomitant]
     Indication: CEREBROVASCULAR ACCIDENT
     Dosage: UNK, DAILY
     Route: 048
  15. LACTULOSE [Concomitant]
     Indication: CONSTIPATION
     Dosage: 15 ML, 2X/DAY
  16. FOSINOPRIL [Concomitant]
     Indication: ESSENTIAL HYPERTENSION
     Dosage: 10 UG, 1X/DAY
     Route: 048
  17. TIOTROPIUM [Concomitant]
     Indication: CHRONIC OBSTRUCTIVE PULMONARY DISEASE
     Dosage: UNK

REACTIONS (2)
  - ARTHRITIS [None]
  - DIABETES MELLITUS INADEQUATE CONTROL [None]
